FAERS Safety Report 5546835-3 (Version None)
Quarter: 2007Q4

REPORT INFORMATION
  Report Type: 
  Country: None (occurrence: None)
  Receive Date: 20071211
  Receipt Date: 20071129
  Transmission Date: 20080405
  Serious: Yes (Hospitalization, Other)
  Sender: FDA-Public Use
  Company Number: US-PFIZER INC-2007101048

PATIENT
  Sex: Female
  Weight: 66.7 kg

DRUGS (5)
  1. ALPRAZOLAM [Suspect]
     Indication: PANIC ATTACK
     Dosage: FREQ:AS NEEDED
     Dates: start: 20071012, end: 20071101
  2. HYDROCODONE BITARTRATE [Concomitant]
  3. LOTREL [Concomitant]
  4. DIOVAN [Concomitant]
  5. NEXIUM [Concomitant]

REACTIONS (7)
  - DYSPNOEA [None]
  - HYPERSENSITIVITY [None]
  - PRURITUS [None]
  - RASH [None]
  - STOMACH DISCOMFORT [None]
  - SWOLLEN TONGUE [None]
  - URTICARIA [None]
